FAERS Safety Report 12169106 (Version 1)
Quarter: 2016Q1

REPORT INFORMATION
  Report Type: Spontaneous
  Country: US (occurrence: US)
  Receive Date: 20160310
  Receipt Date: 20160310
  Transmission Date: 20160526
  Serious: Yes (Death, Other)
  Sender: FDA-Public Use
  Company Number: PHHY2016US030109

PATIENT
  Age: 56 Year
  Sex: Male

DRUGS (1)
  1. ALLOPURINOL. [Suspect]
     Active Substance: ALLOPURINOL
     Indication: TUMOUR LYSIS SYNDROME
     Route: 065

REACTIONS (2)
  - Pulseless electrical activity [Fatal]
  - Drug reaction with eosinophilia and systemic symptoms [Unknown]
